FAERS Safety Report 19932761 (Version 4)
Quarter: 2021Q4

REPORT INFORMATION
  Report Type: Report from Study
  Country: BR (occurrence: BR)
  Receive Date: 20211008
  Receipt Date: 20211114
  Transmission Date: 20220303
  Serious: Yes (Other)
  Sender: FDA-Public Use
  Company Number: NVSC2021BR179083

PATIENT
  Age: 34 Year
  Sex: Male
  Weight: 78 kg

DRUGS (3)
  1. COSENTYX [Suspect]
     Active Substance: SECUKINUMAB
     Indication: Ankylosing spondylitis
     Dosage: 150 MG, QW (ATTACK DOSE)
     Route: 058
     Dates: start: 20210901, end: 20210929
  2. COSENTYX [Suspect]
     Active Substance: SECUKINUMAB
     Dosage: 150 MG (FOR MONTH)
     Route: 058
     Dates: start: 202110
  3. LOSARTAN [Suspect]
     Active Substance: LOSARTAN
     Indication: Hypertension
     Dosage: 1 DF, Q12H (STARTED 2 YEARS AGO)
     Route: 048

REACTIONS (5)
  - Facial bones fracture [Recovering/Resolving]
  - Road traffic accident [Unknown]
  - Rheumatic disorder [Unknown]
  - Pain [Unknown]
  - Product prescribing error [Unknown]

NARRATIVE: CASE EVENT DATE: 20210916
